FAERS Safety Report 23370068 (Version 3)
Quarter: 2024Q1

REPORT INFORMATION
  Report Type: Report from Study
  Country: CA (occurrence: CA)
  Receive Date: 20240105
  Receipt Date: 20240123
  Transmission Date: 20240410
  Serious: Yes (Death, Hospitalization, Other)
  Sender: FDA-Public Use
  Company Number: CA-AstraZeneca-2024A001393

PATIENT
  Sex: Female

DRUGS (1)
  1. ENHERTU [Suspect]
     Active Substance: FAM-TRASTUZUMAB DERUXTECAN-NXKI
     Indication: HER2 low breast cancer
     Dosage: 340 MG, ONCE EVERY 3 WK
     Route: 042
     Dates: start: 20230626

REACTIONS (2)
  - Death [Fatal]
  - Metastases to meninges [Unknown]
